FAERS Safety Report 7712439-7 (Version None)
Quarter: 2011Q3

REPORT INFORMATION
  Report Type: 
  Country: None (occurrence: None)
  Receive Date: 20110823
  Receipt Date: 20110808
  Transmission Date: 20111222
  Serious: Yes (Hospitalization)
  Sender: FDA-Public Use
  Company Number: 7034185

PATIENT
  Age: 21 Year
  Sex: Male

DRUGS (5)
  1. NETOPIRONE (METYRAPONE) (METYRAPONE) [Suspect]
     Indication: PRODUCT USED FOR UNKNOWN INDICATION
     Dosage: 1500 MG (250 MG,6 IN 1 D) ORAL ; 2250 MG (250 MG,9 IN 1 D) ORAL
     Route: 048
     Dates: start: 20101118, end: 20101213
  2. NETOPIRONE (METYRAPONE) (METYRAPONE) [Suspect]
     Indication: PRODUCT USED FOR UNKNOWN INDICATION
     Dosage: 1500 MG (250 MG,6 IN 1 D) ORAL ; 2250 MG (250 MG,9 IN 1 D) ORAL
     Route: 048
     Dates: start: 20101116, end: 20101117
  3. LEVOTHYROXINE SODIUM [Suspect]
     Indication: PRODUCT USED FOR UNKNOWN INDICATION
     Dosage: 175 MCG (175 MCG,1 IN 1 D) ORAL
     Route: 048
  4. ALDACTONE [Suspect]
     Indication: PRODUCT USED FOR UNKNOWN INDICATION
     Dosage: 75 MG (75 MG,1 IN 1 D) ORAL
     Route: 048
  5. LYSODREN [Suspect]
     Indication: PRODUCT USED FOR UNKNOWN INDICATION
     Dosage: 4 DF (2 DF,2 IN 1 D) ORAL
     Route: 048
     Dates: start: 20101006

REACTIONS (1)
  - HEPATITIS ACUTE [None]
